FAERS Safety Report 6694255-0 (Version None)
Quarter: 2010Q2

REPORT INFORMATION
  Report Type: 
  Country: None (occurrence: None)
  Receive Date: 20100423
  Receipt Date: 20100323
  Transmission Date: 20101027
  Serious: Yes (Death, Hospitalization, Other)
  Sender: FDA-Public Use
  Company Number: US-BAXTER-2010BH003128

PATIENT
  Age: 78 Year
  Sex: Male

DRUGS (15)
  1. HEPARIN SODIUM INJECTION [Suspect]
     Indication: HAEMODIALYSIS
     Route: 065
     Dates: start: 20080208, end: 20080208
  2. HEPARIN SODIUM INJECTION [Suspect]
     Route: 065
     Dates: start: 20080121, end: 20080121
  3. HEPARIN SODIUM INJECTION [Suspect]
     Route: 065
     Dates: start: 20080123, end: 20080123
  4. HEPARIN SODIUM INJECTION [Suspect]
     Route: 065
     Dates: start: 20080125, end: 20080125
  5. HEPARIN SODIUM INJECTION [Suspect]
     Route: 065
     Dates: start: 20080128, end: 20080128
  6. HEPARIN SODIUM INJECTION [Suspect]
     Route: 065
     Dates: start: 20080130, end: 20080130
  7. HEPARIN SODIUM INJECTION [Suspect]
     Route: 065
     Dates: start: 20080201, end: 20080201
  8. HEPARIN SODIUM INJECTION [Suspect]
     Route: 065
     Dates: start: 20080204, end: 20080204
  9. HEPARIN SODIUM INJECTION [Suspect]
     Route: 065
     Dates: start: 20080206, end: 20080206
  10. PHOSLO [Concomitant]
     Indication: DRUG USE FOR UNKNOWN INDICATION
     Route: 065
  11. SENSIPAR [Concomitant]
     Indication: DRUG USE FOR UNKNOWN INDICATION
     Route: 065
  12. LEXAPRO [Concomitant]
     Indication: DRUG USE FOR UNKNOWN INDICATION
     Route: 065
  13. ZINC [Concomitant]
     Indication: DRUG USE FOR UNKNOWN INDICATION
     Route: 065
  14. INTRADIALYTIC PARENTERAL NUTRITION [Concomitant]
     Indication: DRUG USE FOR UNKNOWN INDICATION
     Route: 065
  15. EPOGEN [Concomitant]
     Indication: DRUG USE FOR UNKNOWN INDICATION
     Route: 065

REACTIONS (5)
  - ASTHENIA [None]
  - HYPOTENSION [None]
  - LUNG NEOPLASM MALIGNANT [None]
  - NAUSEA [None]
  - PNEUMONIA [None]
